FAERS Safety Report 7994541-8 (Version None)
Quarter: 2011Q4

REPORT INFORMATION
  Report Type: 
  Country: None (occurrence: None)
  Receive Date: 20111220
  Receipt Date: 20111213
  Transmission Date: 20120403
  Serious: Yes (Hospitalization)
  Sender: FDA-Public Use
  Company Number: US-SANOFI-AVENTIS-2011SA075127

PATIENT
  Age: 72 Year
  Sex: Male
  Weight: 76.9 kg

DRUGS (5)
  1. CABAZITAXEL [Suspect]
     Route: 042
     Dates: start: 20111027, end: 20111027
  2. DOCUSATE SODIUM [Concomitant]
     Route: 048
     Dates: start: 20110725
  3. CABAZITAXEL [Suspect]
     Route: 042
     Dates: start: 20110915, end: 20110915
  4. PREDNISONE [Suspect]
     Route: 048
     Dates: start: 20110915, end: 20111129
  5. PROCHLORPERAZINE [Concomitant]
     Indication: PROPHYLAXIS
     Route: 048
     Dates: start: 20110915

REACTIONS (3)
  - SEPSIS [None]
  - PULMONARY EMBOLISM [None]
  - HAEMATURIA [None]
